FAERS Safety Report 8708438 (Version 2)
Quarter: 2013Q4

REPORT INFORMATION
  Report Type: Spontaneous
  Country: US (occurrence: US)
  Receive Date: 20120806
  Receipt Date: 20131101
  Transmission Date: 20140711
  Serious: No
  Sender: FDA-Public Use
  Company Number: US-009507513-1207USA007860

PATIENT
  Sex: Female

DRUGS (11)
  1. VICTRELIS [Suspect]
     Dosage: 800 MG, TID
     Route: 048
  2. REBETOL [Suspect]
     Dosage: UNK
  3. PEGASYS [Suspect]
  4. SINGULAIR [Concomitant]
     Dosage: 10 MG, UNK
  5. ZOLPIDEM TARTRATE [Concomitant]
     Dosage: 5 MG, UNK
  6. VALIUM [Concomitant]
     Dosage: 2 MG, UNK
  7. ADVAIR [Concomitant]
     Dosage: 500/50
  8. OMEPRAZOLE [Concomitant]
     Dosage: 20 MG, UNK
  9. HYDROCHLOROTHIAZIDE (+) TRIAMTERENE [Concomitant]
     Dosage: 37.5-25
  10. IBUPROFEN [Concomitant]
  11. RANITIDINE [Concomitant]
     Dosage: 75 MG, UNK

REACTIONS (2)
  - Red blood cell count decreased [Unknown]
  - White blood cell count decreased [Unknown]
